FAERS Safety Report 12083058 (Version 2)
Quarter: 2018Q2

REPORT INFORMATION
  Report Type: Spontaneous
  Country: US (occurrence: US)
  Receive Date: 20160217
  Receipt Date: 20180531
  Transmission Date: 20180711
  Serious: No
  Sender: FDA-Public Use
  Company Number: US-ASTRAZENECA-2016SE12972

PATIENT
  Age: 21741 Day
  Sex: Male
  Weight: 105.2 kg

DRUGS (2)
  1. BYDUREON [Suspect]
     Active Substance: EXENATIDE
     Indication: TYPE 2 DIABETES MELLITUS
     Route: 058
  2. BYDUREON BCISE [Suspect]
     Active Substance: EXENATIDE
     Route: 065

REACTIONS (7)
  - Product quality issue [Unknown]
  - Injection site haemorrhage [Recovered/Resolved]
  - Intentional product misuse [Unknown]
  - Skin injury [Unknown]
  - Injection site pain [Recovered/Resolved]
  - Injection site extravasation [Unknown]
  - Drug dose omission [Unknown]

NARRATIVE: CASE EVENT DATE: 20160205
